FAERS Safety Report 19586005 (Version 1)
Quarter: 2021Q3

REPORT INFORMATION
  Report Type: Spontaneous
  Country: CA (occurrence: CA)
  Receive Date: 20210720
  Receipt Date: 20210720
  Transmission Date: 20211014
  Serious: Yes (Other)
  Sender: FDA-Public Use
  Company Number: CA-PFIZER INC-2021861764

PATIENT
  Age: 40 Year
  Sex: Female
  Weight: 72 kg

DRUGS (9)
  1. METHOTREXATE SODIUM. [Suspect]
     Active Substance: METHOTREXATE SODIUM
     Dosage: 1 DF
     Route: 065
  2. CODEINE [Suspect]
     Active Substance: CODEINE
     Dosage: UNK
     Route: 065
  3. PREDNISONE. [Suspect]
     Active Substance: PREDNISONE
     Dosage: UNK
     Route: 065
  4. RINVOQ [Suspect]
     Active Substance: UPADACITINIB
     Indication: RHEUMATOID ARTHRITIS
     Dosage: 15 MG, 1X/DAY
     Route: 048
  5. SULFASALAZINE. [Suspect]
     Active Substance: SULFASALAZINE
     Dosage: UNK
     Route: 065
  6. MORPHINE [Suspect]
     Active Substance: MORPHINE
     Dosage: UNK
     Route: 065
  7. PLAQUENIL [Suspect]
     Active Substance: HYDROXYCHLOROQUINE SULFATE
     Route: 065
  8. SIMPONI [Suspect]
     Active Substance: GOLIMUMAB
     Route: 058
  9. TYLENOL [Suspect]
     Active Substance: ACETAMINOPHEN
     Dosage: 1 DF
     Route: 065

REACTIONS (12)
  - Drug ineffective [Unknown]
  - Pain [Unknown]
  - Seizure [Unknown]
  - Decreased appetite [Unknown]
  - Rheumatoid arthritis [Unknown]
  - Vomiting [Unknown]
  - Headache [Unknown]
  - Hypersensitivity [Unknown]
  - Muscle strain [Unknown]
  - Weight decreased [Unknown]
  - Gait inability [Unknown]
  - Swelling [Unknown]
